FAERS Safety Report 14325392 (Version 1)
Quarter: 2017Q4

REPORT INFORMATION
  Report Type: Spontaneous
  Country: US (occurrence: DE)
  Receive Date: 20171226
  Receipt Date: 20171226
  Transmission Date: 20180321
  Serious: Yes (Other)
  Sender: FDA-Public Use
  Company Number: US-MYLANLABS-2017M1081663

PATIENT
  Age: 6 Decade
  Sex: Female

DRUGS (7)
  1. CAPECITABINE. [Suspect]
     Active Substance: CAPECITABINE
     Indication: INVASIVE DUCTAL BREAST CARCINOMA
     Dosage: PALLIATIVE CHEMOTHERAPY OF CAPECITABINE AND BEVACIZUMAB.
     Route: 065
  2. ERIBULIN [Suspect]
     Active Substance: ERIBULIN
     Indication: INVASIVE DUCTAL BREAST CARCINOMA
     Dosage: UNK
     Route: 065
  3. BORTEZOMIB [Concomitant]
     Active Substance: BORTEZOMIB
     Indication: PRODUCT USED FOR UNKNOWN INDICATION
     Dosage: UNK
     Route: 065
  4. IFOSFAMIDE. [Suspect]
     Active Substance: IFOSFAMIDE
     Indication: INVASIVE DUCTAL BREAST CARCINOMA
     Dosage: THREE CYCLES OF CHEMOTHERAPY WITH CISPLATIN AND IFOSFAMIDE
     Route: 065
  5. CISPLATIN. [Suspect]
     Active Substance: CISPLATIN
     Indication: INVASIVE DUCTAL BREAST CARCINOMA
     Dosage: THREE CYCLES OF CHEMOTHERAPY WITH CISPLATIN AND IFOSFAMIDE.
     Route: 065
  6. DOXORUBICIN [Suspect]
     Active Substance: DOXORUBICIN
     Indication: INVASIVE DUCTAL BREAST CARCINOMA
     Dosage: UNK
     Route: 065
  7. BEVACIZUMAB. [Suspect]
     Active Substance: BEVACIZUMAB
     Indication: INVASIVE DUCTAL BREAST CARCINOMA
     Dosage: PALLIATIVE CHEMOTHERAPY OF CAPECITABINE AND BEVACIZUMAB
     Route: 065

REACTIONS (9)
  - Palmar-plantar erythrodysaesthesia syndrome [Unknown]
  - Vomiting [Unknown]
  - Genital abscess [Unknown]
  - Polyneuropathy [Unknown]
  - Haematotoxicity [Unknown]
  - Nausea [Unknown]
  - Stomatitis [Unknown]
  - Superinfection [Unknown]
  - Hyponatraemia [Unknown]
